FAERS Safety Report 13933985 (Version 2)
Quarter: 2018Q1

REPORT INFORMATION
  Report Type: Spontaneous
  Country: US (occurrence: US)
  Receive Date: 20170904
  Receipt Date: 20180129
  Transmission Date: 20180508
  Serious: Yes (Hospitalization, Other)
  Sender: FDA-Public Use
  Company Number: US-DSJP-DSU-2017-134359

PATIENT

DRUGS (1)
  1. BENICAR [Suspect]
     Active Substance: OLMESARTAN MEDOXOMIL
     Indication: PRODUCT USED FOR UNKNOWN INDICATION
     Dosage: 20 MG, QD
     Route: 048
     Dates: start: 20090505, end: 20170407

REACTIONS (8)
  - Chronic gastritis [Unknown]
  - Gastric disorder [Unknown]
  - Weight decreased [Unknown]
  - Diverticulum [Not Recovered/Not Resolved]
  - Diverticulitis [Not Recovered/Not Resolved]
  - Ulcer [Unknown]
  - Duodenitis [Unknown]
  - Colitis [Unknown]

NARRATIVE: CASE EVENT DATE: 200907
